FAERS Safety Report 4593958-1 (Version None)
Quarter: 2005Q1

REPORT INFORMATION
  Report Type: 
  Country: None (occurrence: None)
  Receive Date: 20050301
  Receipt Date: 20050223
  Transmission Date: 20050727
  Serious: Yes (Disabling, Other)
  Sender: FDA-Public Use
  Company Number: US-MERCK-0502USA03264

PATIENT
  Age: 72 Year
  Sex: Female

DRUGS (11)
  1. ZOCOR [Suspect]
     Indication: BLOOD CHOLESTEROL INCREASED
     Route: 048
     Dates: start: 20010101
  2. PRINIVIL [Concomitant]
     Route: 048
  3. TOPROL-XL [Concomitant]
     Route: 065
  4. NEURONTIN [Concomitant]
     Route: 065
  5. TIAZAC [Concomitant]
     Route: 065
  6. [THERAPY UNSPECIFIED] [Concomitant]
     Route: 065
  7. ALLOPURINOL [Concomitant]
     Route: 065
  8. ASPIRIN [Concomitant]
     Route: 065
  9. FOSAMAX [Concomitant]
     Route: 048
  10. INSULIN [Concomitant]
     Route: 065
  11. TRICOR [Concomitant]
     Route: 065

REACTIONS (5)
  - CARDIAC DISORDER [None]
  - CARDIAC OPERATION [None]
  - GALLBLADDER DISORDER [None]
  - GALLBLADDER OPERATION [None]
  - TREMOR [None]
